FAERS Safety Report 9526282 (Version 1)
Quarter: 2013Q1

REPORT INFORMATION
  Report Type: Spontaneous
  Country: US (occurrence: None)
  Receive Date: 20130305
  Receipt Date: 20130305
  Transmission Date: 20140127
  Serious: Yes (Hospitalization)
  Sender: FDA-Public Use
  Company Number: 163-21880-12020895

PATIENT
  Age: 76 Year
  Sex: Female

DRUGS (7)
  1. REVLIMID [Suspect]
     Indication: PLASMA CELL MYELOMA
     Dosage: 10 MG, DAILY FOR 21 DAYS, PO
     Route: 048
     Dates: start: 20120103, end: 2012
  2. METHADOSE (METHADONE HYDROCHLORIDE) (10 MILLIGRAM, TABLETS) [Concomitant]
  3. AREDIA (PAMIDRONATE DISCODIUM) (SOLUTION) [Concomitant]
  4. WARFARIN SODIUM (WARFARIN SODIUM) (3 MILLIGRAM, TABLETS) [Concomitant]
  5. FENTANYL (FENTANYL) (POULTICE OR PATCH)? [Concomitant]
  6. DEXAMETHASONE (DEXAMETHASONE) (4 MILLIGRAM, TABLETS) [Concomitant]
  7. CALCIUM CARBONATE-VITAMIN D (LEKOVIT CA) (TABLETS) [Concomitant]

REACTIONS (1)
  - Cystitis [None]
